FAERS Safety Report 4522370-6 (Version None)
Quarter: 2004Q4

REPORT INFORMATION
  Report Type: 
  Country: None (occurrence: None)
  Receive Date: 20041209
  Receipt Date: 20041203
  Transmission Date: 20050328
  Serious: Yes (Hospitalization)
  Sender: FDA-Public Use
  Company Number: FR-GLAXOSMITHKLINE-B0358944A

PATIENT
  Age: 73 Year
  Sex: Male

DRUGS (9)
  1. MALARONE [Suspect]
     Indication: MALARIA PROPHYLAXIS
     Dosage: 1TAB PER DAY
     Route: 048
  2. HEMIDAONIL [Suspect]
     Indication: DIABETES MELLITUS
     Dosage: 2.5MG TWICE PER DAY
     Route: 048
     Dates: end: 20041007
  3. TEMESTA [Concomitant]
     Dosage: 1UNIT PER DAY
     Route: 048
  4. LODALES [Concomitant]
     Dosage: 1UNIT THREE TIMES PER WEEK
     Route: 048
  5. APROVEL [Concomitant]
     Dosage: 1UNIT PER DAY
     Route: 048
  6. YOHIMBINE [Concomitant]
     Dosage: 2MG THREE TIMES PER DAY
     Route: 048
  7. INIPOMP [Concomitant]
     Dosage: 1UNIT PER DAY
  8. PERMIXON [Concomitant]
     Dosage: 1UNIT TWICE PER DAY
     Route: 048
  9. VOLTAREN [Concomitant]
     Dosage: 50MG THREE TIMES PER DAY
     Route: 048

REACTIONS (3)
  - CONFUSIONAL STATE [None]
  - DRUG INTERACTION [None]
  - HYPOGLYCAEMIA [None]
